FAERS Safety Report 8175880-7 (Version None)
Quarter: 2012Q1

REPORT INFORMATION
  Report Type: 
  Country: None (occurrence: None)
  Receive Date: 20120301
  Receipt Date: 20120222
  Transmission Date: 20120608
  Serious: Yes (Death)
  Sender: FDA-Public Use
  Company Number: AR-BAYER-2012-018379

PATIENT
  Sex: Male

DRUGS (1)
  1. NEXAVAR [Suspect]
     Indication: THYROID CANCER METASTATIC
     Dosage: UNK
     Route: 048

REACTIONS (1)
  - CARDIAC DISORDER [None]
